FAERS Safety Report 12515320 (Version 2)
Quarter: 2016Q2

REPORT INFORMATION
  Report Type: Spontaneous
  Country: US (occurrence: US)
  Receive Date: 20160630
  Receipt Date: 20160630
  Transmission Date: 20160815
  Serious: Yes (Hospitalization)
  Sender: FDA-Public Use
  Company Number: US-JNJFOC-20160500054

PATIENT
  Age: 50 Year
  Sex: Male

DRUGS (25)
  1. TYLENOL [Suspect]
     Active Substance: ACETAMINOPHEN
     Route: 065
  2. LEVOFLOXACIN. [Concomitant]
     Active Substance: LEVOFLOXACIN
     Indication: PRODUCT USED FOR UNKNOWN INDICATION
     Route: 042
  3. NORVASC [Concomitant]
     Active Substance: AMLODIPINE BESYLATE
     Indication: HYPERTENSION
     Route: 065
     Dates: start: 2001
  4. ALBUTEROL. [Concomitant]
     Active Substance: ALBUTEROL
     Indication: PRODUCT USED FOR UNKNOWN INDICATION
     Route: 065
  5. MORPHINE [Concomitant]
     Active Substance: MORPHINE
     Indication: PRODUCT USED FOR UNKNOWN INDICATION
     Route: 065
     Dates: start: 2007, end: 2016
  6. XARELTO [Suspect]
     Active Substance: RIVAROXABAN
     Indication: THROMBOSIS
     Dosage: 15 MG TWICE A DAY FOR 21 DAYS AND 20 MG ONCE DAILY
     Route: 048
     Dates: start: 20140410, end: 20140830
  7. PLAVIX [Suspect]
     Active Substance: CLOPIDOGREL BISULFATE
     Indication: VASCULAR INSUFFICIENCY
     Route: 065
  8. PLAVIX [Suspect]
     Active Substance: CLOPIDOGREL BISULFATE
     Indication: PERIPHERAL VASCULAR DISORDER
     Route: 065
  9. SERTRALINE [Concomitant]
     Active Substance: SERTRALINE HYDROCHLORIDE
     Indication: DEPRESSION
     Route: 065
     Dates: start: 2012, end: 2013
  10. TYLENOL [Suspect]
     Active Substance: ACETAMINOPHEN
     Indication: PRODUCT USED FOR UNKNOWN INDICATION
     Route: 065
  11. SOLU-MEDROL [Concomitant]
     Active Substance: METHYLPREDNISOLONE SODIUM SUCCINATE
     Indication: PRODUCT USED FOR UNKNOWN INDICATION
     Route: 065
  12. ZOFRAN [Concomitant]
     Active Substance: ONDANSETRON HYDROCHLORIDE
     Indication: PRODUCT USED FOR UNKNOWN INDICATION
     Route: 065
  13. PLAVIX [Suspect]
     Active Substance: CLOPIDOGREL BISULFATE
     Indication: PERIPHERAL VASCULAR DISORDER
     Route: 065
     Dates: end: 2014
  14. FAMOTIDINE. [Concomitant]
     Active Substance: FAMOTIDINE
     Indication: GASTROOESOPHAGEAL REFLUX DISEASE
     Route: 065
  15. MIRALAX [Concomitant]
     Active Substance: POLYETHYLENE GLYCOL 3350
     Indication: PRODUCT USED FOR UNKNOWN INDICATION
     Route: 065
  16. PLAVIX [Suspect]
     Active Substance: CLOPIDOGREL BISULFATE
     Indication: VASCULAR INSUFFICIENCY
     Route: 065
     Dates: end: 2014
  17. LOPRESSOR [Concomitant]
     Active Substance: METOPROLOL TARTRATE
     Indication: HYPERTENSION
     Route: 065
     Dates: start: 2001
  18. LASIX [Concomitant]
     Active Substance: FUROSEMIDE
     Indication: PRODUCT USED FOR UNKNOWN INDICATION
     Route: 065
  19. HYDROCHLOROTHIAZIDE. [Concomitant]
     Active Substance: HYDROCHLOROTHIAZIDE
     Indication: HYPERTENSION
     Route: 065
  20. DIAZEPAM. [Concomitant]
     Active Substance: DIAZEPAM
     Indication: PRODUCT USED FOR UNKNOWN INDICATION
     Route: 065
     Dates: start: 2007, end: 2015
  21. MUCINEX [Concomitant]
     Active Substance: GUAIFENESIN
     Indication: PRODUCT USED FOR UNKNOWN INDICATION
     Route: 065
  22. XARELTO [Suspect]
     Active Substance: RIVAROXABAN
     Indication: VASCULAR INSUFFICIENCY
     Dosage: 15 MG TWICE A DAY FOR 21 DAYS AND 20 MG ONCE DAILY
     Route: 048
     Dates: start: 20140410, end: 20140830
  23. XARELTO [Suspect]
     Active Substance: RIVAROXABAN
     Indication: DEEP VEIN THROMBOSIS
     Dosage: 15 MG TWICE A DAY FOR 21 DAYS AND 20 MG ONCE DAILY
     Route: 048
     Dates: start: 20140410, end: 20140830
  24. XARELTO [Suspect]
     Active Substance: RIVAROXABAN
     Indication: GALLBLADDER OPERATION
     Dosage: 15 MG TWICE A DAY FOR 21 DAYS AND 20 MG ONCE DAILY
     Route: 048
     Dates: start: 20140410, end: 20140830
  25. OXYCODONE [Concomitant]
     Active Substance: OXYCODONE
     Indication: PRODUCT USED FOR UNKNOWN INDICATION
     Route: 065
     Dates: start: 2009

REACTIONS (3)
  - Gastrointestinal haemorrhage [Unknown]
  - Blood blister [Recovering/Resolving]
  - Haemorrhage [Recovering/Resolving]

NARRATIVE: CASE EVENT DATE: 20140804
